FAERS Safety Report 7301773-0 (Version None)
Quarter: 2011Q1

REPORT INFORMATION
  Report Type: 
  Country: None (occurrence: None)
  Receive Date: 20110218
  Receipt Date: 20110214
  Transmission Date: 20110831
  Serious: Yes (Hospitalization)
  Sender: FDA-Public Use
  Company Number: A0913427A

PATIENT
  Age: 71 Year
  Sex: Male

DRUGS (5)
  1. LANOXIN [Concomitant]
  2. COUMADIN [Concomitant]
  3. UNKNOWN [Concomitant]
  4. VASOTEC [Concomitant]
  5. AVODART [Suspect]
     Indication: BENIGN PROSTATIC HYPERPLASIA
     Route: 048
     Dates: end: 20080401

REACTIONS (3)
  - DIZZINESS [None]
  - HYPOTENSION [None]
  - DYSSTASIA [None]
